FAERS Safety Report 9235769 (Version 2)
Quarter: 2013Q2

REPORT INFORMATION
  Report Type: Spontaneous
  Country: US (occurrence: None)
  Receive Date: 20121031
  Receipt Date: 20130107
  Transmission Date: 20140414
  Serious: Yes (Other)
  Sender: FDA-Public Use
  Company Number: PHEH2012US016660

PATIENT
  Age: 62 Year
  Sex: Female
  Weight: 77.1 kg

DRUGS (10)
  1. GILENYA [Suspect]
     Indication: RELAPSING-REMITTING MULTIPLE SCLEROSIS
     Route: 048
     Dates: start: 20120821
  2. GLIMEPIRIDE [Concomitant]
  3. LEVOTHYROXINE [Concomitant]
  4. LOTREL (AMLODIPINE, BENAZEPRIL HYDROCHLORIDE) [Concomitant]
  5. METFORMIN [Concomitant]
  6. PREDNISONE [Concomitant]
  7. HYDROCHLOROTHIAZIDE [Concomitant]
  8. SYNTHROID (LEVOTHYROXINE SODIUM) [Concomitant]
  9. POTASSIUM [Concomitant]
  10. PRAVASTATIN [Concomitant]

REACTIONS (1)
  - Heart rate decreased [None]
